FAERS Safety Report 8119527-4 (Version None)
Quarter: 2012Q1

REPORT INFORMATION
  Report Type: 
  Country: None (occurrence: None)
  Receive Date: 20120207
  Receipt Date: 20120125
  Transmission Date: 20120608
  Serious: Yes (Other)
  Sender: FDA-Public Use
  Company Number: PHEH2012US001630

PATIENT
  Sex: Female

DRUGS (17)
  1. SANDOSTATIN [Suspect]
     Indication: CARCINOID SYNDROME
     Dosage: 200 MG
  2. SANDOSTATIN LAR [Suspect]
     Dosage: 30 MG, UNK
  3. SIMVASTATIN [Concomitant]
     Dosage: UNK
  4. AMLODIPINE [Concomitant]
     Dosage: UNK
  5. TOPIRAMATE [Concomitant]
     Dosage: UNK
  6. LISINOPRIL [Concomitant]
     Dosage: UNK
  7. SOMA [Concomitant]
     Dosage: UNK
  8. HYDROCODIN [Concomitant]
     Dosage: UNK UKN, UNK
  9. POTASSIUM [Concomitant]
     Dosage: UNK
  10. OXYCODONE HCL [Concomitant]
     Dosage: UNK
  11. SANDOSTATIN LAR [Suspect]
     Dosage: UNK
  12. LEVOTHYROXINE SODIUM [Concomitant]
     Dosage: UNK
  13. LASIX [Concomitant]
     Dosage: UNK
  14. LOPRESSOR [Concomitant]
     Dosage: UNK
  15. GLIPIZIDE [Concomitant]
     Dosage: UNK
  16. NEURONTIN [Concomitant]
     Dosage: UNK
  17. ELIDEL [Concomitant]
     Dosage: UNK

REACTIONS (5)
  - FLUSHING [None]
  - NEOPLASM PROGRESSION [None]
  - INJECTION SITE PAIN [None]
  - DRUG INEFFECTIVE [None]
  - METASTASES TO LUNG [None]
